FAERS Safety Report 6888781-9 (Version None)
Quarter: 2010Q3

REPORT INFORMATION
  Report Type: 
  Country: None (occurrence: None)
  Receive Date: 20100730
  Receipt Date: 20071207
  Transmission Date: 20110219
  Serious: No
  Sender: FDA-Public Use
  Company Number: US-PFIZER INC-2007092931

PATIENT
  Age: 77 Year
  Sex: Male

DRUGS (8)
  1. LIPITOR [Suspect]
     Indication: BLOOD CHOLESTEROL INCREASED
  2. PACERONE [Suspect]
     Indication: ARRHYTHMIA
     Route: 048
  3. AMIODARONE HCL [Suspect]
     Indication: ARRHYTHMIA
     Route: 048
  4. BENICAR [Concomitant]
  5. ACETAMINOPHEN AND HYDROCODONE BITARTRATE [Concomitant]
  6. TUMS [Concomitant]
  7. ACETYLSALICYLIC ACID SRT [Concomitant]
  8. MULTI-VITAMINS [Concomitant]

REACTIONS (1)
  - FATIGUE [None]
